FAERS Safety Report 11235779 (Version 1)
Quarter: 2015Q3

REPORT INFORMATION
  Report Type: Spontaneous
  Country: DE (occurrence: DE)
  Receive Date: 20150702
  Receipt Date: 20150702
  Transmission Date: 20151125
  Serious: Yes (Disabling)
  Sender: FDA-Public Use
  Company Number: DE-PFIZER INC-2015220952

PATIENT
  Sex: Male

DRUGS (2)
  1. INTAL [Suspect]
     Active Substance: CROMOLYN SODIUM
     Dosage: UNK UNK, DAILY (1 MG/0.5 MG)
     Route: 048
  2. SALBUTAMOL [Suspect]
     Active Substance: ALBUTEROL
     Dosage: UNK
     Route: 065

REACTIONS (1)
  - Cardiac disorder [Unknown]
